FAERS Safety Report 8204978-X (Version None)
Quarter: 2012Q1

REPORT INFORMATION
  Report Type: 
  Country: None (occurrence: None)
  Receive Date: 20120313
  Receipt Date: 20120305
  Transmission Date: 20120608
  Serious: No
  Sender: FDA-Public Use
  Company Number: US-BAYER-2012-022988

PATIENT
  Age: 82 Year
  Sex: Female
  Weight: 55 kg

DRUGS (2)
  1. ANTIHYPERTENSIVES [Concomitant]
     Indication: HYPERTENSION
  2. ALEVE (CAPLET) [Suspect]
     Indication: ANALGESIC THERAPY
     Dosage: 1 DF, BID
     Route: 048
     Dates: start: 20120302, end: 20120304

REACTIONS (2)
  - THROAT IRRITATION [None]
  - ABDOMINAL PAIN UPPER [None]
